FAERS Safety Report 4478504-5 (Version None)
Quarter: 2004Q4

REPORT INFORMATION
  Report Type: 
  Country: None (occurrence: None)
  Receive Date: 20041019
  Receipt Date: 20041007
  Transmission Date: 20050328
  Serious: Yes (Hospitalization)
  Sender: FDA-Public Use
  Company Number: US-AMGEN-US094832

PATIENT
  Sex: Male

DRUGS (9)
  1. ENBREL [Suspect]
     Indication: RHEUMATOID ARTHRITIS
     Route: 058
     Dates: start: 20021111, end: 20031119
  2. PREDNISONE TAB [Concomitant]
     Route: 048
     Dates: start: 20040630
  3. IMURAN [Concomitant]
     Route: 048
     Dates: start: 20040212, end: 20040714
  4. CELLCEPT [Concomitant]
     Route: 048
     Dates: start: 20040714
  5. DURAGESIC [Concomitant]
     Dates: start: 20040409
  6. VICODIN [Concomitant]
     Dates: start: 20040311
  7. LIDEX [Concomitant]
     Dates: start: 20040301, end: 20040630
  8. MULTI-VITAMINS [Concomitant]
     Dates: start: 20040502, end: 20040630
  9. STOOL SOFTENER [Concomitant]
     Dates: start: 20040502, end: 20040630

REACTIONS (1)
  - FAILURE TO THRIVE [None]
